FAERS Safety Report 16883440 (Version 1)
Quarter: 2019Q4

REPORT INFORMATION
  Report Type: Spontaneous
  Country: US (occurrence: US)
  Receive Date: 20191004
  Receipt Date: 20191004
  Transmission Date: 20200122
  Serious: Yes (Other)
  Sender: FDA-Public Use
  Company Number: US-LUPIN PHARMACEUTICALS INC.-2019-06288

PATIENT
  Age: 6 Decade
  Sex: Female
  Weight: 102.04 kg

DRUGS (2)
  1. INDOCIN [Concomitant]
     Active Substance: INDOMETHACIN
     Indication: ARTHRALGIA
     Dosage: UNK
     Route: 065
  2. AMLODIPINE BESYLATE TABLETS USP, 5 MG [Suspect]
     Active Substance: AMLODIPINE BESYLATE
     Indication: HYPERTENSION
     Dosage: 5 MILLIGRAM, BID
     Route: 048

REACTIONS (3)
  - Joint swelling [Not Recovered/Not Resolved]
  - Hypertension [Unknown]
  - Suspected product quality issue [Unknown]
